FAERS Safety Report 13292313 (Version 2)
Quarter: 2017Q1

REPORT INFORMATION
  Report Type: Report from Study
  Country: None (occurrence: IE)
  Receive Date: 20170303
  Receipt Date: 20170317
  Transmission Date: 20170428
  Serious: Yes (Other)
  Sender: FDA-Public Use
  Company Number: IE-BIOVITRUM-2012IE0376

PATIENT
  Sex: Male
  Weight: 34 kg

DRUGS (4)
  1. SALBUTAMOL [Concomitant]
     Active Substance: ALBUTEROL
     Indication: ASTHMA
  2. BECLOMETHASONE [Concomitant]
     Active Substance: BECLOMETHASONE
     Indication: ASTHMA
  3. ORFADIN [Suspect]
     Active Substance: NITISINONE
     Indication: TYROSINAEMIA
  4. ORFADIN [Suspect]
     Active Substance: NITISINONE
     Dates: start: 20161216

REACTIONS (7)
  - Enuresis [Recovering/Resolving]
  - Dyspraxia [Unknown]
  - Alpha 1 foetoprotein increased [Unknown]
  - Succinylacetone increased [Unknown]
  - Amino acid level increased [Unknown]
  - Amino acid level increased [Recovered/Resolved]
  - Attention deficit/hyperactivity disorder [Not Recovered/Not Resolved]

NARRATIVE: CASE EVENT DATE: 2012
